FAERS Safety Report 16269768 (Version 6)
Quarter: 2023Q1

REPORT INFORMATION
  Report Type: Spontaneous
  Country: US (occurrence: US)
  Receive Date: 20190503
  Receipt Date: 20230314
  Transmission Date: 20230418
  Serious: Yes (Other)
  Sender: FDA-Public Use
  Company Number: US-PFIZER INC-2019185750

PATIENT
  Age: 70 Year
  Sex: Male
  Weight: 93 kg

DRUGS (3)
  1. XELJANZ [Suspect]
     Active Substance: TOFACITINIB CITRATE
     Indication: Colitis ulcerative
     Dosage: 10 MG, 2X/DAY (1 TABLET BY MOUTH TWICE DAILY)
     Route: 048
     Dates: start: 201801
  2. XELJANZ [Suspect]
     Active Substance: TOFACITINIB CITRATE
     Indication: Rheumatoid arthritis
     Dosage: 10 MG, 2X/DAY (WITH MEALS: 1 TABLET IN THE MORNING, 1 TABLET IN THE EVENING)
     Route: 048
     Dates: start: 20181204
  3. XELJANZ [Suspect]
     Active Substance: TOFACITINIB CITRATE
     Indication: Pain
     Dosage: 5 MG

REACTIONS (5)
  - Diabetes mellitus [Unknown]
  - Osteoarthritis [Unknown]
  - Joint effusion [Unknown]
  - Pain in extremity [Unknown]
  - Weight abnormal [Unknown]

NARRATIVE: CASE EVENT DATE: 20190404
